FAERS Safety Report 24264737 (Version 1)
Quarter: 2024Q3

REPORT INFORMATION
  Report Type: Spontaneous
  Country: US (occurrence: US)
  Receive Date: 20240829
  Receipt Date: 20240829
  Transmission Date: 20241016
  Serious: Yes (Other)
  Sender: PFIZER
  Company Number: US-PFIZER INC-202400244935

PATIENT
  Age: 5 Year
  Sex: Male

DRUGS (1)
  1. XALKORI [Suspect]
     Active Substance: CRIZOTINIB
     Indication: Inflammatory myofibroblastic tumour
     Dosage: 2700 MG, WEEKLY (PER WEEK)
     Route: 048
     Dates: start: 202404, end: 202405

REACTIONS (4)
  - Retinal haemorrhage [Unknown]
  - Optic nerve disorder [Unknown]
  - Retinal disorder [Unknown]
  - Visual impairment [Unknown]
